FAERS Safety Report 6120864-3 (Version None)
Quarter: 2009Q1

REPORT INFORMATION
  Report Type: 
  Country: None (occurrence: None)
  Receive Date: 20090313
  Receipt Date: 20090227
  Transmission Date: 20090719
  Serious: Yes (Hospitalization)
  Sender: FDA-Public Use
  Company Number: 2009S1003685

PATIENT
  Age: 22 Year
  Sex: Female

DRUGS (2)
  1. DICLOFENAC (DICLOFENAC) [Suspect]
     Indication: TOOTHACHE
     Dosage: ORAL
     Route: 048
  2. BERLOSIN (METAMIZOLE SODIUM) [Suspect]
     Indication: TOOTHACHE
     Dosage: 500 MG; ORAL
     Route: 048
     Dates: start: 20080201, end: 20080201

REACTIONS (2)
  - DRUG INTERACTION [None]
  - HYPERSENSITIVITY [None]
